FAERS Safety Report 6764625-0 (Version None)
Quarter: 2010Q2

REPORT INFORMATION
  Report Type: 
  Country: None (occurrence: None)
  Receive Date: 20100609
  Receipt Date: 20100226
  Transmission Date: 20101027
  Serious: No
  Sender: FDA-Public Use
  Company Number: 2010005163

PATIENT
  Age: 6 Month
  Sex: Male
  Weight: 9.5255 kg

DRUGS (1)
  1. CHILDREN'S ZYRTEC ALLERGY [Suspect]
     Indication: EAR INFECTION
     Dosage: ONE FOURTH TO HALF A TEASPOON DAILY, ORAL
     Route: 048

REACTIONS (3)
  - EAR DISORDER [None]
  - OFF LABEL USE [None]
  - WRONG DRUG ADMINISTERED [None]
